FAERS Safety Report 7148584-7 (Version None)
Quarter: 2010Q4

REPORT INFORMATION
  Report Type: 
  Country: None (occurrence: None)
  Receive Date: 20101209
  Receipt Date: 20101129
  Transmission Date: 20110411
  Serious: Yes (Other)
  Sender: FDA-Public Use
  Company Number: CA-JNJFOC-20100908954

PATIENT
  Age: 69 Year
  Sex: Male
  Weight: 86 kg

DRUGS (7)
  1. REMICADE [Suspect]
     Indication: ANKYLOSING SPONDYLITIS
     Dosage: 13 INFUSIONS
     Route: 042
  2. REMICADE [Suspect]
     Route: 042
  3. TYLENOL (CAPLET) [Concomitant]
     Indication: PAIN
     Route: 048
  4. CELEBREX [Concomitant]
     Indication: ARTHRITIS
  5. NORVASC [Concomitant]
     Route: 048
  6. HYDROCHLOROTHIAZIDE [Concomitant]
     Route: 048
  7. OMEPRAZOLE [Concomitant]
     Route: 048

REACTIONS (1)
  - LYMPHOMATOID PAPULOSIS [None]
